FAERS Safety Report 10085863 (Version 2)
Quarter: 2014Q2

REPORT INFORMATION
  Report Type: Spontaneous
  Country: FR (occurrence: None)
  Receive Date: 20140416
  Receipt Date: 20140604
  Transmission Date: 20141212
  Serious: Yes (Death)
  Sender: FDA-Public Use
  Company Number: 2282578

PATIENT
  Age: 58 Year
  Sex: Male
  Weight: 98 kg

DRUGS (12)
  1. ATRACURIUM BESILATE [Suspect]
     Indication: GENERAL ANAESTHESIA
     Route: 040
     Dates: start: 20140314, end: 20140314
  2. SUXAMETHONIUM [Suspect]
     Indication: GENERAL ANAESTHESIA
     Route: 040
     Dates: start: 20140314, end: 20140314
  3. PROPOFOL [Concomitant]
  4. REMIFENTANIL [Concomitant]
  5. KARDEGIC [Concomitant]
  6. DUOPLAVIN [Concomitant]
  7. ATENOLOL [Concomitant]
  8. CREON [Concomitant]
  9. INIPOMP [Concomitant]
  10. LESCOL [Concomitant]
  11. NASONEX [Concomitant]
  12. XATRAL [Concomitant]

REACTIONS (7)
  - Shock [None]
  - Cardiac arrest [None]
  - Renal failure [None]
  - Hepatic failure [None]
  - Cell death [None]
  - Disseminated intravascular coagulation [None]
  - Anaphylactic shock [None]
